FAERS Safety Report 8831984 (Version 2)
Quarter: 2012Q4

REPORT INFORMATION
  Report Type: Report from Study
  Country: US (occurrence: US)
  Receive Date: 20121009
  Receipt Date: 20121023
  Transmission Date: 20130627
  Serious: Yes (Hospitalization)
  Sender: FDA-Public Use
  Company Number: US-ROCHE-CID000000002171742

PATIENT
  Age: 66 Year
  Sex: Male
  Weight: 142.5 kg

DRUGS (4)
  1. BEVACIZUMAB [Suspect]
     Indication: PROSTATE CANCER METASTATIC
     Dosage: last dose prior to sae:23/07/2012
     Route: 042
     Dates: start: 20120307
  2. LENALIDOMIDE [Suspect]
     Indication: PROSTATE CANCER METASTATIC
     Dosage: last dose prior to sae:30/07/2012
     Route: 048
  3. PREDNISONE [Suspect]
     Indication: PROSTATE CANCER METASTATIC
     Dosage: last dose prior to sae:30/07/2012
     Route: 048
     Dates: start: 20120730
  4. DOCETAXEL [Suspect]
     Indication: PROSTATE CANCER METASTATIC
     Dosage: last dose proir to sae:23/07/2012
     Route: 042

REACTIONS (4)
  - Atrial fibrillation [Recovered/Resolved]
  - Hypotension [Recovered/Resolved]
  - Syncope [Recovered/Resolved]
  - Blood bilirubin increased [Recovered/Resolved]
